FAERS Safety Report 7984122-4 (Version None)
Quarter: 2011Q4

REPORT INFORMATION
  Report Type: 
  Country: None (occurrence: None)
  Receive Date: 20111216
  Receipt Date: 20111213
  Transmission Date: 20120403
  Serious: Yes (Other)
  Sender: FDA-Public Use
  Company Number: CA-PFIZER INC-2011304305

PATIENT
  Sex: Female

DRUGS (1)
  1. EFFEXOR XR [Suspect]
     Dosage: 150 MG, 1X/DAY
     Dates: start: 20110101

REACTIONS (2)
  - DEPENDENCE [None]
  - WITHDRAWAL SYNDROME [None]
